FAERS Safety Report 8887433 (Version 1)
Quarter: 2012Q4

REPORT INFORMATION
  Report Type: Spontaneous
  Country: US (occurrence: None)
  Receive Date: 20121101
  Receipt Date: 20121101
  Transmission Date: 20130627
  Serious: Yes (Other)
  Sender: FDA-Public Use
  Company Number: None

PATIENT
  Age: 77 Year
  Sex: Female
  Weight: 54.43 kg

DRUGS (1)
  1. TEKTURNA [Suspect]
     Indication: HYPERTENSION
     Route: 048
     Dates: start: 2009, end: 201206

REACTIONS (4)
  - Syncope [None]
  - Blood glucose decreased [None]
  - Contusion [None]
  - Patella fracture [None]
